FAERS Safety Report 10041670 (Version 1)
Quarter: 2014Q1

REPORT INFORMATION
  Report Type: Spontaneous
  Country: US (occurrence: US)
  Receive Date: 20140327
  Receipt Date: 20140327
  Transmission Date: 20141002
  Serious: Yes (Other)
  Sender: FDA-Public Use
  Company Number: PHHY2014US032323

PATIENT
  Age: 76 Year
  Sex: Female

DRUGS (5)
  1. HYDRALAZINE [Suspect]
     Indication: HYPERTENSION
     Dosage: 50 MG, TID
  2. LISINOPRIL [Concomitant]
     Indication: HYPERTENSION
     Dosage: 10 MG, QD
  3. AMLODIPINE [Concomitant]
     Indication: HYPERTENSION
     Dosage: 5 MG, QD
  4. AMLODIPINE [Concomitant]
     Dosage: 30 MG, DAILY
  5. HYDROCHLOROTHIAZIDE [Concomitant]
     Indication: HYPERTENSION
     Dosage: 25 MG, QD

REACTIONS (3)
  - Glomerulonephritis [Unknown]
  - Blood creatinine increased [Recovering/Resolving]
  - Renal failure acute [Unknown]
